FAERS Safety Report 6613597-8 (Version None)
Quarter: 2010Q1

REPORT INFORMATION
  Report Type: 
  Country: None (occurrence: None)
  Receive Date: 20100304
  Receipt Date: 20100226
  Transmission Date: 20100710
  Serious: Yes (Death, Hospitalization)
  Sender: FDA-Public Use
  Company Number: FR-CELGENEUS-056-C5013-10022143

PATIENT
  Sex: Male

DRUGS (12)
  1. CC-5013 [Suspect]
     Indication: MULTIPLE MYELOMA
     Route: 048
     Dates: start: 20100203, end: 20100222
  2. CC-5013 [Suspect]
     Route: 048
     Dates: start: 20091230
  3. DEXAMETHASONE [Suspect]
     Indication: MULTIPLE MYELOMA
     Route: 065
     Dates: start: 20100203, end: 20100217
  4. DEXAMETHASONE [Suspect]
     Route: 065
     Dates: start: 20091230
  5. BISOPROLOL [Concomitant]
     Indication: HYPERTENSION
     Route: 048
     Dates: end: 20100225
  6. FUROSEMIDE [Concomitant]
     Indication: HYPERTENSION
     Route: 048
     Dates: end: 20100225
  7. PREVISCAN [Concomitant]
     Indication: THROMBOSIS
     Route: 048
     Dates: end: 20100225
  8. LEVOTHYROX [Concomitant]
     Indication: HYPOTHYROIDISM
     Route: 048
     Dates: end: 20100225
  9. COLCHIMAX [Concomitant]
     Indication: GOUT
     Route: 048
     Dates: end: 20100225
  10. ALLOPURINOL [Concomitant]
     Route: 048
     Dates: end: 20100225
  11. XATRAL LP [Concomitant]
     Route: 048
     Dates: end: 20100225
  12. PARACETAMOL [Concomitant]
     Indication: BONE PAIN
     Route: 065
     Dates: end: 20100225

REACTIONS (2)
  - LUNG INFECTION [None]
  - SEPSIS [None]
